FAERS Safety Report 5021826-X (Version None)
Quarter: 2006Q2

REPORT INFORMATION
  Report Type: 
  Country: None (occurrence: None)
  Receive Date: 20060609
  Receipt Date: 20060201
  Transmission Date: 20061013
  Serious: Yes (Other)
  Sender: FDA-Public Use
  Company Number: PHEH2006US01632

PATIENT
  Age: 68 Year
  Sex: Male

DRUGS (7)
  1. ZOMETA [Suspect]
     Indication: MULTIPLE MYELOMA
     Dosage: 4 MG MONTHLY
     Dates: start: 20031101, end: 20050901
  2. ZOMETA [Suspect]
     Dosage: 3.5 MG MONTHLY
     Dates: start: 20031101, end: 20050901
  3. AREDIA [Suspect]
     Indication: MULTIPLE MYELOMA
     Dosage: 90 MG MONTHLY
     Dates: start: 20020201, end: 20031001
  4. VINCRISTINE + ADRIAMYCIN + DEXAMETHASONE [Concomitant]
  5. PREDNISONE [Concomitant]
  6. THALIDOMIDE [Concomitant]
  7. MELPHALAN [Concomitant]

REACTIONS (6)
  - BONE DISORDER [None]
  - COMPRESSION FRACTURE [None]
  - LYMPHADENOPATHY [None]
  - OSTEOLYSIS [None]
  - OSTEONECROSIS [None]
  - SOFT TISSUE DISORDER [None]
